FAERS Safety Report 9704682 (Version 1)
Quarter: 2013Q4

REPORT INFORMATION
  Report Type: Spontaneous
  Country: US (occurrence: US)
  Receive Date: 20131122
  Receipt Date: 20131122
  Transmission Date: 20140711
  Serious: No
  Sender: FDA-Public Use
  Company Number: US-009507513-1311USA009041

PATIENT
  Age: 53 Year
  Sex: Male

DRUGS (2)
  1. JANUMET [Suspect]
     Indication: DIABETES MELLITUS
     Dosage: 50/1000MG TWICE DAILY
     Route: 048
     Dates: start: 2007, end: 2013
  2. GLIMEPIRIDE [Concomitant]

REACTIONS (3)
  - Amylase increased [Recovered/Resolved]
  - Lipase increased [Not Recovered/Not Resolved]
  - Abdominal pain [Recovering/Resolving]
